FAERS Safety Report 14901917 (Version 3)
Quarter: 2019Q1

REPORT INFORMATION
  Report Type: Spontaneous
  Country: NL (occurrence: NL)
  Receive Date: 20180516
  Receipt Date: 20190104
  Transmission Date: 20190417
  Serious: Yes (Hospitalization, Other)
  Sender: FDA-Public Use
  Company Number: NL-CONCORDIA PHARMACEUTICALS INC.-E2B_00011757

PATIENT
  Age: 54 Year
  Sex: Female

DRUGS (3)
  1. RITUXIMAB. [Concomitant]
     Active Substance: RITUXIMAB
     Indication: ANTISYNTHETASE SYNDROME
     Route: 065
  2. PREDNISOLONE. [Suspect]
     Active Substance: PREDNISOLONE
     Indication: ANTISYNTHETASE SYNDROME
  3. PREDNISOLONE. [Suspect]
     Active Substance: PREDNISOLONE
     Dosage: DOSE REDUCED

REACTIONS (1)
  - Scleroderma renal crisis [Recovering/Resolving]
